FAERS Safety Report 17209805 (Version 2)
Quarter: 2020Q1

REPORT INFORMATION
  Report Type: Spontaneous
  Country: US (occurrence: US)
  Receive Date: 20191227
  Receipt Date: 20200306
  Transmission Date: 20200409
  Serious: No
  Sender: FDA-Public Use
  Company Number: US-SA-2019SA352780

PATIENT
  Age: 43 Year
  Sex: Female

DRUGS (11)
  1. INCRUSE ELLIPTA [Concomitant]
     Active Substance: UMECLIDINIUM BROMIDE
  2. OLOPATADINE. [Concomitant]
     Active Substance: OLOPATADINE
  3. TRETINOIN. [Concomitant]
     Active Substance: TRETINOIN
  4. MOMETASONE [Concomitant]
     Active Substance: MOMETASONE
  5. LYRICA [Concomitant]
     Active Substance: PREGABALIN
  6. GABAPENTIN. [Concomitant]
     Active Substance: GABAPENTIN
  7. DUPIXENT [Suspect]
     Active Substance: DUPILUMAB
     Dosage: 200 MG, QOW
     Route: 058
     Dates: start: 20191127
  8. MINOCYCLINE [Concomitant]
     Active Substance: MINOCYCLINE HYDROCHLORIDE
  9. ADVAIR HFA [Concomitant]
     Active Substance: FLUTICASONE PROPIONATE\SALMETEROL XINAFOATE
  10. ZILEUTON. [Concomitant]
     Active Substance: ZILEUTON
  11. DUPIXENT [Suspect]
     Active Substance: DUPILUMAB
     Indication: ASTHMA
     Dosage: 400 MG, 1X
     Route: 058
     Dates: start: 2019, end: 2019

REACTIONS (3)
  - Vision blurred [Unknown]
  - Lacrimation increased [Not Recovered/Not Resolved]
  - Condition aggravated [Not Recovered/Not Resolved]

NARRATIVE: CASE EVENT DATE: 201912
